FAERS Safety Report 8204703-2 (Version None)
Quarter: 2012Q1

REPORT INFORMATION
  Report Type: 
  Country: None (occurrence: None)
  Receive Date: 20120313
  Receipt Date: 20120302
  Transmission Date: 20120608
  Serious: Yes (Hospitalization, Other)
  Sender: FDA-Public Use
  Company Number: CA-CELGENEUS-028-C5013-12012779

PATIENT
  Sex: Male
  Weight: 75 kg

DRUGS (12)
  1. SIMVASTATIN [Concomitant]
     Dosage: 20 MILLIGRAM
     Route: 048
  2. WARFARIN SODIUM [Concomitant]
     Indication: THROMBOSIS PROPHYLAXIS
     Dosage: 2.5-5MG
     Route: 048
  3. LENALIDOMIDE [Suspect]
     Indication: MULTIPLE MYELOMA
     Dosage: 10 MILLIGRAM
     Route: 048
     Dates: start: 20100622
  4. ESOMEPRAZOLE SODIUM [Concomitant]
     Indication: PROPHYLAXIS AGAINST GASTROINTESTINAL ULCER
     Dosage: 40 MILLIGRAM
     Route: 048
  5. CITALOPRAM HYDROBROMIDE [Concomitant]
     Indication: DEPRESSION
     Dosage: 20 MILLIGRAM
     Route: 048
  6. FUROSEMIDE [Concomitant]
     Dosage: 20 MILLIGRAM
     Route: 048
  7. LENALIDOMIDE [Suspect]
     Dosage: 10 MILLIGRAM
     Route: 048
     Dates: start: 20120104, end: 20120124
  8. DEXAMETHASONE [Suspect]
     Dosage: 20 MILLIGRAM
     Route: 065
     Dates: start: 20120104, end: 20120111
  9. ACETYLSALICYLIC ACID SRT [Concomitant]
     Dosage: 81 MILLIGRAM
     Route: 048
  10. DEXAMETHASONE [Suspect]
     Indication: MULTIPLE MYELOMA
     Dosage: 20 MILLIGRAM
     Route: 065
     Dates: start: 20100622
  11. PSYLLIUM [Concomitant]
     Indication: CONSTIPATION
     Dosage: 1 DOSAGE FORMS
     Route: 048
  12. DRONEDARON [Concomitant]
     Dosage: 400 MILLIGRAM
     Route: 048

REACTIONS (2)
  - SQUAMOUS CELL CARCINOMA OF SKIN [None]
  - FALL [None]
